FAERS Safety Report 18137147 (Version 2)
Quarter: 2020Q4

REPORT INFORMATION
  Report Type: Report from Study
  Country: CN (occurrence: CN)
  Receive Date: 20200811
  Receipt Date: 20201015
  Transmission Date: 20210113
  Serious: Yes (Other)
  Sender: FDA-Public Use
  Company Number: CN-ASTRAZENECA-2020SE97845

PATIENT
  Age: 54 Year
  Sex: Female

DRUGS (4)
  1. TIGAGRELOR [Suspect]
     Active Substance: TICAGRELOR
     Indication: CEREBROVASCULAR ACCIDENT
     Dosage: 180 MG LOADING DOSE
     Route: 048
     Dates: start: 20151129, end: 20151129
  2. ASPIRIN. [Suspect]
     Active Substance: ASPIRIN
     Indication: TRANSIENT ISCHAEMIC ATTACK
     Dosage: 100-300 MG
     Route: 048
     Dates: start: 20151129, end: 20151129
  3. TIGAGRELOR [Suspect]
     Active Substance: TICAGRELOR
     Indication: TRANSIENT ISCHAEMIC ATTACK
     Dosage: 180 MG LOADING DOSE
     Route: 048
     Dates: start: 20151129, end: 20151129
  4. ASPIRIN. [Suspect]
     Active Substance: ASPIRIN
     Indication: CEREBROVASCULAR ACCIDENT
     Dosage: 100-300 MG
     Route: 048
     Dates: start: 20151129, end: 20151129

REACTIONS (1)
  - Cardiac asthma [Unknown]

NARRATIVE: CASE EVENT DATE: 20151129
